FAERS Safety Report 7340860-8 (Version None)
Quarter: 2011Q1

REPORT INFORMATION
  Report Type: 
  Country: None (occurrence: None)
  Receive Date: 20110309
  Receipt Date: 20110228
  Transmission Date: 20110831
  Serious: Yes (Other)
  Sender: FDA-Public Use
  Company Number: US-TEVA-269091USA

PATIENT
  Sex: Female
  Weight: 53.118 kg

DRUGS (1)
  1. PLAN B ONE-STEP [Suspect]
     Indication: POST COITAL CONTRACEPTION
     Route: 048

REACTIONS (3)
  - HAEMOPTYSIS [None]
  - PELVIC PAIN [None]
  - VOMITING [None]
